FAERS Safety Report 19286970 (Version 1)
Quarter: 2021Q2

REPORT INFORMATION
  Report Type: Spontaneous
  Country: US (occurrence: US)
  Receive Date: 20210521
  Receipt Date: 20210521
  Transmission Date: 20210717
  Serious: No
  Sender: FDA-Public Use
  Company Number: US-RADIUS HEALTH INC.-2020US003510

PATIENT
  Sex: Female

DRUGS (1)
  1. TYMLOS [Suspect]
     Active Substance: ABALOPARATIDE
     Indication: PRODUCT USED FOR UNKNOWN INDICATION
     Dosage: 80 MCG, QD
     Route: 058

REACTIONS (5)
  - Blood pressure abnormal [Recovered/Resolved]
  - Heart rate increased [Not Recovered/Not Resolved]
  - Contusion [Not Recovered/Not Resolved]
  - Urine calcium decreased [Recovered/Resolved]
  - Headache [Not Recovered/Not Resolved]
